FAERS Safety Report 7578830-7 (Version None)
Quarter: 2011Q2

REPORT INFORMATION
  Report Type: 
  Country: None (occurrence: None)
  Receive Date: 20110628
  Receipt Date: 20110616
  Transmission Date: 20111010
  Serious: Yes (Hospitalization)
  Sender: FDA-Public Use
  Company Number: JP-UCBSA-021414

PATIENT
  Sex: Male
  Weight: 13.4 kg

DRUGS (9)
  1. LEVETIRACETAM [Suspect]
     Route: 048
     Dates: start: 20100721, end: 20100803
  2. LEVETIRACETAM [Suspect]
     Route: 048
     Dates: start: 20101130, end: 20110209
  3. LEVETIRACETAM [Suspect]
     Route: 048
     Dates: start: 20110525
  4. LEVETIRACETAM [Suspect]
     Indication: PARTIAL SEIZURES
     Route: 048
     Dates: start: 20100706, end: 20100721
  5. LEVETIRACETAM [Suspect]
     Route: 048
     Dates: start: 20100803, end: 20101013
  6. LEVETIRACETAM [Suspect]
     Dosage: EVENING DOSE UNKNOWN
     Route: 048
     Dates: start: 20101013, end: 20101129
  7. LEVETIRACETAM [Suspect]
     Route: 048
     Dates: start: 20110210, end: 20110524
  8. SULTIAME [Concomitant]
     Indication: EPILEPSY
     Route: 048
     Dates: start: 20100409
  9. PHENYTOIN [Concomitant]
     Indication: EPILEPSY
     Route: 048
     Dates: start: 20100401

REACTIONS (1)
  - ACETONAEMIC VOMITING [None]
